FAERS Safety Report 11221229 (Version 1)
Quarter: 2015Q2

REPORT INFORMATION
  Report Type: Spontaneous
  Country: US (occurrence: US)
  Receive Date: 20150626
  Receipt Date: 20150626
  Transmission Date: 20150821
  Serious: No
  Sender: FDA-Public Use
  Company Number: US-BIOGENIDEC-2015BI087345

PATIENT
  Sex: Female

DRUGS (4)
  1. PREDNISOLONE. [Concomitant]
     Active Substance: PREDNISOLONE
     Indication: PRODUCT USED FOR UNKNOWN INDICATION
     Route: 042
  2. BOTOX [Concomitant]
     Active Substance: ONABOTULINUMTOXINA
     Indication: HEADACHE
  3. TECFIDERA [Suspect]
     Active Substance: DIMETHYL FUMARATE
     Indication: PRODUCT USED FOR UNKNOWN INDICATION
  4. BOTOX [Concomitant]
     Active Substance: ONABOTULINUMTOXINA
     Indication: MUSCLE SPASMS

REACTIONS (13)
  - Band sensation [Unknown]
  - Visual acuity reduced [Unknown]
  - Adverse drug reaction [Unknown]
  - Headache [Unknown]
  - Dyspnoea [Unknown]
  - Apnoea [Unknown]
  - Muscle spasms [Unknown]
  - Blindness unilateral [Unknown]
  - Vomiting [Unknown]
  - Myalgia [Unknown]
  - Fall [Recovered/Resolved]
  - Hiccups [Unknown]
  - Sensory loss [Unknown]
